FAERS Safety Report 5781763-X (Version None)
Quarter: 2008Q2

REPORT INFORMATION
  Report Type: 
  Country: None (occurrence: None)
  Receive Date: 20080623
  Receipt Date: 20070829
  Transmission Date: 20081010
  Serious: No
  Sender: FDA-Public Use
  Company Number: US-ASTRAZENECA-2007UW20568

PATIENT
  Age: 80 Year
  Sex: Female
  Weight: 72.6 kg

DRUGS (2)
  1. RHINOCORT [Suspect]
     Indication: COUGH
     Dosage: 1 PEN
     Route: 045
     Dates: start: 20070701
  2. PROTONIX [Concomitant]

REACTIONS (1)
  - HYPOAESTHESIA [None]
